FAERS Safety Report 23218820 (Version 4)
Quarter: 2024Q1

REPORT INFORMATION
  Report Type: Spontaneous
  Country: US (occurrence: US)
  Receive Date: 20231122
  Receipt Date: 20240314
  Transmission Date: 20240410
  Serious: No
  Sender: FDA-Public Use
  Company Number: US-THERATECHNOLOGIES INC.-2023-THE-TES-000464

PATIENT

DRUGS (11)
  1. EGRIFTA SV [Suspect]
     Active Substance: TESAMORELIN ACETATE
     Indication: HIV lipodystrophy
     Dosage: 1.4 MG, QD
     Route: 058
     Dates: start: 20231019
  2. IBUPROFEN [Concomitant]
     Active Substance: IBUPROFEN
     Indication: Cervical spinal stenosis
     Dosage: 800 MG, TID, PRN
     Route: 048
     Dates: start: 20230504
  3. IBUPROFEN [Concomitant]
     Active Substance: IBUPROFEN
     Indication: Pain
  4. APAP [Concomitant]
     Active Substance: ACETAMINOPHEN
     Indication: Cervical spinal stenosis
     Dosage: 500 MG, TID, PRN
     Route: 048
     Dates: start: 20240119
  5. APAP [Concomitant]
     Active Substance: ACETAMINOPHEN
     Indication: Pain
  6. CYCLOBENZAPRINE [Concomitant]
     Active Substance: CYCLOBENZAPRINE
     Indication: Cervical spinal stenosis
     Dosage: 5 MG, BID, PRN
     Route: 048
     Dates: start: 20231016
  7. CYCLOBENZAPRINE [Concomitant]
     Active Substance: CYCLOBENZAPRINE
     Indication: Muscle spasms
  8. CYCLOBENZAPRINE [Concomitant]
     Active Substance: CYCLOBENZAPRINE
     Indication: Neck pain
  9. BIKTARVY [Concomitant]
     Active Substance: BICTEGRAVIR SODIUM\EMTRICITABINE\TENOFOVIR ALAFENAMIDE FUMARATE
     Indication: HIV infection
     Dosage: 50/200/25 MG, QD
     Route: 048
     Dates: start: 201908
  10. OMEPRAZOLE [Concomitant]
     Active Substance: OMEPRAZOLE
     Indication: Gastrooesophageal reflux disease
     Dosage: 40 MG, QAM
     Route: 048
     Dates: start: 20200116
  11. TAMSULOSIN [Concomitant]
     Active Substance: TAMSULOSIN
     Indication: Benign prostatic hyperplasia
     Dosage: 0.4 MG, QD
     Route: 048
     Dates: start: 20190717

REACTIONS (3)
  - Injection site mass [Recovered/Resolved]
  - Injection site pain [Unknown]
  - Therapeutic product effect incomplete [Unknown]

NARRATIVE: CASE EVENT DATE: 20231101
